FAERS Safety Report 24241680 (Version 1)
Quarter: 2024Q3

REPORT INFORMATION
  Report Type: Other
  Country: US (occurrence: US)
  Receive Date: 20240823
  Receipt Date: 20240823
  Transmission Date: 20241016
  Serious: Yes (Hospitalization)
  Sender: ALVOGEN
  Company Number: US-ALVOGEN-2024095325

PATIENT
  Age: 72 Year
  Sex: Male

DRUGS (1)
  1. DAPSONE [Suspect]
     Active Substance: DAPSONE
     Indication: Antifungal prophylaxis

REACTIONS (3)
  - Lung opacity [Unknown]
  - Methaemoglobinaemia [Recovered/Resolved]
  - Off label use [Unknown]
